FAERS Safety Report 5474373-5 (Version None)
Quarter: 2007Q4

REPORT INFORMATION
  Report Type: 
  Country: None (occurrence: None)
  Receive Date: 20071002
  Receipt Date: 20070917
  Transmission Date: 20080405
  Serious: Yes (Hospitalization)
  Sender: FDA-Public Use
  Company Number: US-ELI_LILLY_AND_COMPANY-US200708003712

PATIENT
  Sex: Female
  Weight: 41.4 kg

DRUGS (3)
  1. SOMATROPIN [Suspect]
     Indication: HYPOPITUITARISM
     Dosage: 1.8 MG, DAILY (1/D)
     Route: 058
     Dates: start: 20000201
  2. CORTEF [Concomitant]
     Indication: HYPOPITUITARISM
     Dates: start: 20000209
  3. SYNTHROID [Concomitant]
     Indication: HYPOPITUITARISM
     Dates: start: 19990101

REACTIONS (1)
  - SCOLIOSIS [None]
